FAERS Safety Report 7441656-9 (Version None)
Quarter: 2011Q2

REPORT INFORMATION
  Report Type: 
  Country: None (occurrence: None)
  Receive Date: 20110418
  Receipt Date: 20110405
  Transmission Date: 20111010
  Serious: Yes (Other)
  Sender: FDA-Public Use
  Company Number: B0712393A

PATIENT
  Age: 63 Year
  Sex: 0

DRUGS (1)
  1. ALKERAN [Suspect]
     Indication: MULTIPLE MYELOMA
     Dosage: 100 MG/M2 /

REACTIONS (2)
  - MUCOSAL INFLAMMATION [None]
  - RENAL FAILURE CHRONIC [None]
